FAERS Safety Report 20144924 (Version 1)
Quarter: 2021Q4

REPORT INFORMATION
  Report Type: Spontaneous
  Country: NL (occurrence: NL)
  Receive Date: 20211203
  Receipt Date: 20211203
  Transmission Date: 20220303
  Serious: Yes (Other)
  Sender: FDA-Public Use
  Company Number: None

PATIENT
  Age: 31 Year
  Sex: Female
  Weight: 85 kg

DRUGS (2)
  1. NUVARING [Interacting]
     Active Substance: ETHINYL ESTRADIOL\ETONOGESTREL
     Indication: Contraception
     Dosage: ADMINISTRATION SYSTEM FOR VAGINAL USE, 15/120 MICROGRAM/HOUR (MICROGRAM PER 24 HOURS)
  2. PFIZER-BIONTECH COVID-19 VACCINE [Interacting]
     Active Substance: TOZINAMERAN
     Indication: COVID-19 immunisation
     Dosage: 1 DOSAGE FORM
     Dates: start: 20210625

REACTIONS (3)
  - Pregnancy with contraceptive device [Unknown]
  - Heavy menstrual bleeding [Recovered/Resolved]
  - Intermenstrual bleeding [Recovered/Resolved]

NARRATIVE: CASE EVENT DATE: 20210701
